FAERS Safety Report 4463573-9 (Version None)
Quarter: 2004Q3

REPORT INFORMATION
  Report Type: 
  Country: None (occurrence: None)
  Receive Date: 20040917
  Receipt Date: 20040526
  Transmission Date: 20050211
  Serious: No
  Sender: FDA-Public Use
  Company Number: US-JNJFOC-20040506798

PATIENT
  Age: 14 Year
  Sex: Female
  Weight: 37.195 kg

DRUGS (2)
  1. ORTHO EVRA [Suspect]
     Indication: MENSTRUATION IRREGULAR
     Dosage: 1 DOSE(S), 12 IN 13 WEEK, TRANSDERMAL
     Route: 062
     Dates: start: 20030301
  2. ALAZERT (ALLERGY MEDICATION) [Concomitant]

REACTIONS (1)
  - METRORRHAGIA [None]
